FAERS Safety Report 4333311-9 (Version None)
Quarter: 2004Q2

REPORT INFORMATION
  Report Type: 
  Country: None (occurrence: None)
  Receive Date: 20040401
  Receipt Date: 20040325
  Transmission Date: 20050107
  Serious: Yes (Life-Threatening, Hospitalization)
  Sender: FDA-Public Use
  Company Number: TAP2003Q00388

PATIENT
  Age: 22 Year
  Sex: Female

DRUGS (2)
  1. LUPRON [Suspect]
     Indication: OOCYTE DONATION
     Dosage: 1 IN 1 D, INJECTION
  2. ORAL CONTRACEPTIVES (ORAL CONTRACEPTIVES NOS) [Concomitant]

REACTIONS (15)
  - BLOOD SODIUM DECREASED [None]
  - BRAIN COMPRESSION [None]
  - CEREBRAL HAEMORRHAGE [None]
  - CEREBRAL INFARCTION [None]
  - CEREBROVASCULAR SPASM [None]
  - COGNITIVE DISORDER [None]
  - COMA [None]
  - DIABETES INSIPIDUS [None]
  - HYPERTENSION [None]
  - LETHARGY [None]
  - PHOTOPHOBIA [None]
  - PITUITARY HAEMORRHAGE [None]
  - PITUITARY TUMOUR BENIGN [None]
  - PYREXIA [None]
  - TUMOUR NECROSIS [None]
